FAERS Safety Report 8697639 (Version 2)
Quarter: 2013Q4

REPORT INFORMATION
  Report Type: Spontaneous
  Country: GB (occurrence: GB)
  Receive Date: 20120801
  Receipt Date: 20131031
  Transmission Date: 20140711
  Serious: Yes (Disabling)
  Sender: FDA-Public Use
  Company Number: GB-009507513-1207GBR012584

PATIENT
  Age: 41 Year
  Sex: 0

DRUGS (2)
  1. PROPECIA 1MG FILM-COATED TABLET [Suspect]
     Indication: ANDROGENETIC ALOPECIA
     Dosage: 1 MG, QD
     Route: 048
     Dates: start: 201007, end: 20120725
  2. ASACOL [Concomitant]
     Indication: COLITIS ULCERATIVE
     Dosage: 500 MG, UNK
     Route: 054

REACTIONS (11)
  - Spinal pain [Unknown]
  - Fall [Unknown]
  - Vitreous floaters [Unknown]
  - Breast tenderness [Unknown]
  - Asthenia [Unknown]
  - Headache [Unknown]
  - Semen volume decreased [Unknown]
  - Orgasmic sensation decreased [Unknown]
  - Muscular weakness [Unknown]
  - Erectile dysfunction [Unknown]
  - Disability [Unknown]
